FAERS Safety Report 5792913-3 (Version None)
Quarter: 2008Q2

REPORT INFORMATION
  Report Type: 
  Country: None (occurrence: None)
  Receive Date: 20080627
  Receipt Date: 20080522
  Transmission Date: 20081010
  Serious: No
  Sender: FDA-Public Use
  Company Number: US-BAYER-200823719NA

PATIENT
  Age: 58 Year
  Sex: Male

DRUGS (1)
  1. ULTRAVIST 370 [Suspect]
     Indication: SCAN BRAIN
     Dosage: TOTAL DAILY DOSE: 80 ML  UNIT DOSE: 100 ML
     Route: 042
     Dates: start: 20080514, end: 20080514

REACTIONS (2)
  - NAUSEA [None]
  - VOMITING [None]
